FAERS Safety Report 8935031 (Version 2)
Quarter: 2012Q4

REPORT INFORMATION
  Report Type: 
  Country: US (occurrence: US)
  Receive Date: 20121129
  Receipt Date: 20121204
  Transmission Date: 20130627
  Serious: Yes (Death, Hospitalization)
  Sender: FDA-Public Use
  Company Number: US-GILEAD-2012-0065145

PATIENT
  Age: 55 Year
  Sex: Female

DRUGS (4)
  1. LETAIRIS [Suspect]
     Indication: PULMONARY ARTERIAL HYPERTENSION
     Dosage: 10 mg, QD
     Route: 048
     Dates: end: 20121125
  2. LETAIRIS [Suspect]
     Indication: SCLERODERMA
  3. EPOPROSTENOL [Concomitant]
  4. REVATIO [Concomitant]

REACTIONS (2)
  - Scleroderma [Fatal]
  - Atrial fibrillation [Unknown]
